FAERS Safety Report 4736561-2 (Version None)
Quarter: 2005Q3

REPORT INFORMATION
  Report Type: 
  Country: None (occurrence: None)
  Receive Date: 20050805
  Receipt Date: 20050805
  Transmission Date: 20060218
  Serious: Yes (Disabling)
  Sender: FDA-Public Use
  Company Number: None

PATIENT
  Sex: Female
  Weight: 72.5755 kg

DRUGS (1)
  1. ZOLOFT [Suspect]
     Indication: BIPOLAR DISORDER
     Dosage: 200   MGS   ORAL
     Route: 048
     Dates: start: 19990130, end: 20050801

REACTIONS (14)
  - ANXIETY [None]
  - ATTENTION DEFICIT/HYPERACTIVITY DISORDER [None]
  - BIPOLAR DISORDER [None]
  - COMPULSIONS [None]
  - CRYING [None]
  - DEPRESSION [None]
  - DIZZINESS [None]
  - ECONOMIC PROBLEM [None]
  - FEELING ABNORMAL [None]
  - FEELING HOT AND COLD [None]
  - HEADACHE [None]
  - MALAISE [None]
  - MANIA [None]
  - SUICIDAL IDEATION [None]
